FAERS Safety Report 6733532-1 (Version None)
Quarter: 2010Q2

REPORT INFORMATION
  Report Type: 
  Country: None (occurrence: None)
  Receive Date: 20100520
  Receipt Date: 20100520
  Transmission Date: 20101027
  Serious: Yes (Death)
  Sender: FDA-Public Use
  Company Number: None

PATIENT
  Age: 2 Month
  Sex: Male
  Weight: 4.536 kg

DRUGS (2)
  1. TYLENOL INFANT DROPS CHERRY FLAVOR SUBMITTED TO HOUSTON POLICE [Suspect]
     Indication: IMMUNISATION
     Dates: start: 20090316, end: 20090317
  2. TYLENOL INFANT DROPS CHERRY FLAVOR SUBMITTED TO HOUSTON POLICE [Suspect]
     Indication: PYREXIA
     Dates: start: 20090316, end: 20090317

REACTIONS (3)
  - IRRITABILITY [None]
  - PYREXIA [None]
  - SUDDEN INFANT DEATH SYNDROME [None]
